FAERS Safety Report 17150257 (Version 1)
Quarter: 2019Q4

REPORT INFORMATION
  Report Type: Spontaneous
  Country: US (occurrence: US)
  Receive Date: 20191213
  Receipt Date: 20191213
  Transmission Date: 20200122
  Serious: No
  Sender: FDA-Public Use
  Company Number: US-ASTRAZENECA-2019SF65131

PATIENT
  Sex: Female
  Weight: 136.1 kg

DRUGS (10)
  1. GLIPIZIDE. [Concomitant]
     Active Substance: GLIPIZIDE
  2. LISINOPRIL. [Concomitant]
     Active Substance: LISINOPRIL
     Dosage: 10.0MG UNKNOWN
  3. BYDUREON [Suspect]
     Active Substance: EXENATIDE
     Indication: BLOOD GLUCOSE ABNORMAL
     Route: 058
     Dates: start: 201905
  4. MAGNESIUM [Concomitant]
     Active Substance: MAGNESIUM
  5. VITAMIN E [Concomitant]
     Active Substance: .ALPHA.-TOCOPHEROL
     Dosage: 400.0IU UNKNOWN
  6. ASPIRIN. [Concomitant]
     Active Substance: ASPIRIN
  7. IMDUR [Concomitant]
     Active Substance: ISOSORBIDE MONONITRATE
     Dosage: 120.0MG UNKNOWN
  8. PLAVIX [Concomitant]
     Active Substance: CLOPIDOGREL BISULFATE
  9. METOPROLOL. [Concomitant]
     Active Substance: METOPROLOL
  10. METFORMIN [Concomitant]
     Active Substance: METFORMIN HYDROCHLORIDE

REACTIONS (4)
  - Injection site haemorrhage [Not Recovered/Not Resolved]
  - Device malfunction [Unknown]
  - Stress [Not Recovered/Not Resolved]
  - Weight increased [Not Recovered/Not Resolved]
